FAERS Safety Report 10470482 (Version 2)
Quarter: 2014Q4

REPORT INFORMATION
  Report Type: Spontaneous
  Country: US (occurrence: US)
  Receive Date: 20140923
  Receipt Date: 20141023
  Transmission Date: 20150528
  Serious: Yes (Death, Other)
  Sender: FDA-Public Use
  Company Number: US-B.I. PHARMACEUTICALS,INC./RIDGEFIELD-2014-BI-44623BP

PATIENT
  Age: 74 Year
  Sex: Female
  Weight: 95.25 kg

DRUGS (1)
  1. PRADAXA [Suspect]
     Active Substance: DABIGATRAN ETEXILATE MESYLATE
     Indication: PRODUCT USED FOR UNKNOWN INDICATION
     Dosage: 300 MG
     Route: 048
     Dates: start: 20110104

REACTIONS (4)
  - Back pain [Unknown]
  - Embolism [Unknown]
  - Death [Fatal]
  - Ischaemic cerebral infarction [Unknown]

NARRATIVE: CASE EVENT DATE: 2011
